FAERS Safety Report 6006900-3 (Version None)
Quarter: 2008Q4

REPORT INFORMATION
  Report Type: 
  Country: None (occurrence: None)
  Receive Date: 20081217
  Receipt Date: 20081203
  Transmission Date: 20090506
  Serious: Yes (Other)
  Sender: FDA-Public Use
  Company Number: US-ROCHE-505071

PATIENT

DRUGS (3)
  1. CAPECITABINE [Suspect]
     Indication: RECTAL CANCER
     Dosage: 825 MG/M2, 5/WEEK
     Route: 048
     Dates: start: 20070430
  2. BEVACIZUMAB [Suspect]
     Indication: RECTAL CANCER
     Dosage: 5 MG/KG, D1,15,29
     Route: 042
     Dates: start: 20070430
  3. OXALIPLATIN [Suspect]
     Indication: RECTAL CANCER
     Dosage: 50 MG/M2, UNK
     Route: 042
     Dates: start: 20070430

REACTIONS (3)
  - FATIGUE [None]
  - PELVIC ABSCESS [None]
  - WEIGHT DECREASED [None]
